FAERS Safety Report 6176066-8 (Version None)
Quarter: 2009Q2

REPORT INFORMATION
  Report Type: 
  Country: None (occurrence: None)
  Receive Date: 20090501
  Receipt Date: 20090327
  Transmission Date: 20091009
  Serious: Yes (Hospitalization)
  Sender: FDA-Public Use
  Company Number: BR-PFIZER INC-2009190531

PATIENT

DRUGS (9)
  1. MARAVIROC [Suspect]
     Indication: HIV INFECTION
     Dosage: 150 MG, 2X/DAY
     Route: 048
     Dates: start: 20080228
  2. TENOFOVIR [Concomitant]
     Dosage: UNK
     Dates: start: 20080228
  3. LAMIVUDINE [Concomitant]
     Dosage: UNK
     Dates: start: 20080228
  4. DARUNAVIR [Concomitant]
     Dosage: UNK
     Dates: start: 20080228
  5. RITONAVIR [Concomitant]
     Dosage: UNK
     Dates: start: 20080228
  6. SULFAMETHOXAZOLE AND TRIMETHOPRIM [Concomitant]
     Indication: PNEUMOCYSTIS JIROVECI PNEUMONIA
     Dosage: UNK
     Dates: start: 20030210
  7. FLUCONAZOLE [Concomitant]
     Indication: MENINGITIS CRYPTOCOCCAL
     Dosage: 200 MG, 1X/DAY
     Dates: start: 20060904
  8. AZITHROMYCIN [Concomitant]
     Indication: MYCOBACTERIUM AVIUM COMPLEX INFECTION
     Dosage: 1500 MG, WEEKLY
     Dates: start: 20050530
  9. NEUPOGEN [Concomitant]
     Indication: NEUTROPENIA
     Dosage: UNK
     Dates: start: 20051024

REACTIONS (1)
  - CYTOMEGALOVIRUS INFECTION [None]
